FAERS Safety Report 7372342-1 (Version None)
Quarter: 2011Q1

REPORT INFORMATION
  Report Type: 
  Country: None (occurrence: None)
  Receive Date: 20110324
  Receipt Date: 20110316
  Transmission Date: 20110831
  Serious: Yes (Hospitalization)
  Sender: FDA-Public Use
  Company Number: B0707437A

PATIENT
  Sex: Male
  Weight: 64.8 kg

DRUGS (4)
  1. MELPHALAN [Suspect]
     Indication: MULTIPLE MYELOMA
     Dates: start: 20080314, end: 20080414
  2. PREDNISONE [Suspect]
     Indication: MULTIPLE MYELOMA
     Route: 065
     Dates: start: 20080314, end: 20080414
  3. LENALIDOMIDE [Suspect]
     Indication: MULTIPLE MYELOMA
     Route: 048
     Dates: start: 20080314
  4. RED BLOOD CELLS [Concomitant]
     Route: 042

REACTIONS (1)
  - ACUTE CORONARY SYNDROME [None]
